FAERS Safety Report 12000021 (Version 1)
Quarter: 2016Q1

REPORT INFORMATION
  Report Type: Spontaneous
  Country: US (occurrence: US)
  Receive Date: 20160204
  Receipt Date: 20160204
  Transmission Date: 20160526
  Serious: No
  Sender: FDA-Public Use
  Company Number: US-009507513-1602USA001879

PATIENT
  Age: 45 Year
  Sex: Male

DRUGS (1)
  1. SYLATRON [Suspect]
     Active Substance: PEGINTERFERON ALFA-2B
     Dosage: 338 MICROGRAM, EVERY 7 DAYS
     Route: 058
     Dates: start: 2012

REACTIONS (2)
  - Pyrexia [Unknown]
  - Chills [Unknown]

NARRATIVE: CASE EVENT DATE: 20160202
